FAERS Safety Report 24133466 (Version 3)
Quarter: 2024Q3

REPORT INFORMATION
  Report Type: Spontaneous
  Country: CA (occurrence: CA)
  Receive Date: 20240724
  Receipt Date: 20240927
  Transmission Date: 20241017
  Serious: No
  Sender: PFIZER
  Company Number: CA-PFIZER INC-202400218966

PATIENT
  Age: 39 Year
  Sex: Male

DRUGS (1)
  1. ABRILADA [Suspect]
     Active Substance: ADALIMUMAB-AFZB
     Indication: Crohn^s disease
     Dosage: EVERY 2 WEEKS
     Route: 058
     Dates: end: 2023

REACTIONS (2)
  - Product communication issue [Unknown]
  - Injection site pain [Unknown]
